FAERS Safety Report 7723673-4 (Version None)
Quarter: 2011Q3

REPORT INFORMATION
  Report Type: 
  Country: None (occurrence: None)
  Receive Date: 20110901
  Receipt Date: 20110825
  Transmission Date: 20111222
  Serious: Yes (Other)
  Sender: FDA-Public Use
  Company Number: US-B.I. PHARMACEUTICALS,INC./RIDGEFIELD-2011-BP-21097BP

PATIENT
  Age: 69 Year
  Sex: Female

DRUGS (4)
  1. PRADAXA [Suspect]
     Indication: ATRIAL FIBRILLATION
     Route: 048
     Dates: start: 20110811
  2. ASPIRIN [Suspect]
     Indication: MYOCARDIAL INFARCTION
     Dosage: 81 MG
  3. TENORMIN [Suspect]
     Indication: MYOCARDIAL INFARCTION
  4. MEDICATION NOT FURTHER SPECIFIED [Concomitant]

REACTIONS (5)
  - INSOMNIA [None]
  - LETHARGY [None]
  - MOOD ALTERED [None]
  - DEPRESSION [None]
  - ANXIETY [None]
